FAERS Safety Report 15627004 (Version 2)
Quarter: 2019Q1

REPORT INFORMATION
  Report Type: Report from Study
  Country: UG (occurrence: UG)
  Receive Date: 20181116
  Receipt Date: 20190208
  Transmission Date: 20190417
  Serious: Yes (Other)
  Sender: FDA-Public Use
  Company Number: UG-MYLANLABS-2018M1086999

PATIENT
  Sex: Male
  Weight: 2.7 kg

DRUGS (2)
  1. LAMIVUDINE, TENOFOVIR MYLAN [Suspect]
     Active Substance: LAMIVUDINE\TENOFOVIR
     Indication: PRODUCT USED FOR UNKNOWN INDICATION
     Dosage: 1 DOSAGE FORM
     Route: 064
     Dates: start: 20180405
  2. TIVICAY [Suspect]
     Active Substance: DOLUTEGRAVIR SODIUM
     Indication: PRODUCT USED FOR UNKNOWN INDICATION
     Dosage: 50 MILLIGRAM, QD
     Route: 064
     Dates: start: 20180405

REACTIONS (2)
  - Foetal exposure during pregnancy [Recovered/Resolved]
  - Stillbirth [Recovered/Resolved]

NARRATIVE: CASE EVENT DATE: 20180508
